FAERS Safety Report 4806722-2 (Version None)
Quarter: 2005Q4

REPORT INFORMATION
  Report Type: 
  Country: None (occurrence: None)
  Receive Date: 20051019
  Receipt Date: 20051011
  Transmission Date: 20060501
  Serious: Yes (Hospitalization)
  Sender: FDA-Public Use
  Company Number: TPA2005A01046

PATIENT
  Age: 60 Year
  Sex: Male
  Weight: 100.6985 kg

DRUGS (11)
  1. ACTOS [Suspect]
     Indication: DIABETES MELLITUS NON-INSULIN-DEPENDENT
     Dosage: 45 MG, 1 IN 1 D, PER ORAL
     Route: 048
     Dates: start: 20020101, end: 20050908
  2. GLYBURIDE (GLIBENCLAMIDE )(10 MILLIGRAM) [Concomitant]
  3. METFORMIN (METFORMIN) (1000 MILLIGRAM) [Concomitant]
  4. UNKNOWN ANTIBIOTICS (ANTIBIOTICS0 [Concomitant]
  5. HUMALOG [Concomitant]
  6. NOVOLIN N [Concomitant]
  7. NOVOLIN 85/15 [Concomitant]
  8. PRILOSEC (OMEPRAZOLE (20 MILLIGRAM) [Concomitant]
  9. GEMFIBROZIL [Concomitant]
  10. LIPITOR [Concomitant]
  11. PLAVIX [Concomitant]

REACTIONS (4)
  - HEPATITIS [None]
  - KIDNEY INFECTION [None]
  - PANCREAS INFECTION [None]
  - RENAL CYST [None]
